FAERS Safety Report 10068854 (Version 1)
Quarter: 2014Q2

REPORT INFORMATION
  Report Type: Spontaneous
  Country: CH (occurrence: CH)
  Receive Date: 20140409
  Receipt Date: 20140409
  Transmission Date: 20141212
  Serious: Yes (Hospitalization)
  Sender: FDA-Public Use
  Company Number: CH-TEVA-471662ISR

PATIENT
  Age: 81 Year
  Sex: Female

DRUGS (14)
  1. GLIVEC 119.5 MG [Concomitant]
     Dosage: 200 MILLIGRAM DAILY; CONTINUING
     Route: 048
  2. PANTOPRAZOLE [Concomitant]
     Dosage: 20 MILLIGRAM DAILY; CONTINUING
     Route: 048
  3. OXYCONTIN [Concomitant]
     Dosage: 5 MILLIGRAM DAILY; CONTINUING
     Route: 048
  4. DUROGESIC 4.2 MG [Concomitant]
     Dosage: .3333 DOSAGE FORMS DAILY; CONTINUING, DOSE REDUCED TO 12 MCG/H
     Route: 062
  5. NITRODERM 25 MG [Concomitant]
     Dosage: 1 DOSAGE FORMS DAILY; CONTINUING
     Route: 062
  6. CITALOPRAM [Suspect]
     Dosage: 20 MILLIGRAM DAILY;
     Route: 048
     Dates: end: 20140121
  7. TORASEM-MEPHA 10 MG [Suspect]
     Dosage: 10 MILLIGRAM DAILY;
     Route: 048
     Dates: end: 20140121
  8. ALDACTONE 50 MG FILMTABLETTEN [Suspect]
     Dosage: 50 MILLIGRAM DAILY; CONTINUING, DOSE REDUCED TO 25 MG ONCE DAILY
     Route: 048
  9. TRIATEC 5 MG TABLETTEN [Suspect]
     Dosage: 5 MILLIGRAM DAILY;
     Route: 048
     Dates: end: 20140121
  10. METOLAZONE 5 MG [Suspect]
     Dosage: 7.5 MILLIGRAM DAILY;
     Route: 048
     Dates: end: 20140121
  11. SINTROM 1 MG [Concomitant]
     Dosage: CONTINUING, ACCORDING TO SCHEME
     Route: 048
  12. DANCOR 10 MG [Concomitant]
     Dosage: 20 MILLIGRAM DAILY;
     Route: 048
     Dates: end: 201401
  13. PRAMIPREXOL [Concomitant]
     Dosage: .25 MILLIGRAM DAILY;
     Route: 048
  14. LYRICA 50 MG [Concomitant]
     Dosage: 50 MILLIGRAM DAILY;
     Route: 048
     Dates: end: 201401

REACTIONS (4)
  - Hyponatraemia [Recovered/Resolved]
  - Confusional state [Recovered/Resolved]
  - Agitation [Recovered/Resolved]
  - Disturbance in attention [Recovered/Resolved]
